FAERS Safety Report 16274309 (Version 1)
Quarter: 2019Q2

REPORT INFORMATION
  Report Type: Spontaneous
  Country: DE (occurrence: DE)
  Receive Date: 20190504
  Receipt Date: 20190504
  Transmission Date: 20190711
  Serious: Yes (Other)
  Sender: FDA-Public Use
  Company Number: DE-AUROBINDO-AUR-APL-2019-012266

PATIENT

DRUGS (5)
  1. ORFIRIL [Suspect]
     Active Substance: VALPROATE SODIUM
     Indication: EPILEPSY
     Dosage: UNK, VIA ORAL PEG TUBE
     Route: 048
     Dates: start: 201510, end: 201802
  2. LEVETIRACETAM. [Concomitant]
     Active Substance: LEVETIRACETAM
     Indication: SEIZURE
     Dosage: 1500 MILLIGRAM, ONCE A DAY
     Route: 065
  3. APYDAN EXTENT [Suspect]
     Active Substance: OXCARBAZEPINE
     Indication: SEIZURE
     Dosage: 300-0-300
     Route: 065
  4. APYDAN EXTENT [Suspect]
     Active Substance: OXCARBAZEPINE
     Dosage: 300 MILLIGRAM, 12 HOURLY VIA PEG TUBE
     Route: 048
  5. LAMOTRIGINE. [Suspect]
     Active Substance: LAMOTRIGINE
     Indication: SEIZURE
     Dosage: UNK
     Route: 065

REACTIONS (6)
  - Drug ineffective [Unknown]
  - Salivary hypersecretion [Recovered/Resolved]
  - Respiration abnormal [Recovered/Resolved]
  - Nausea [Recovering/Resolving]
  - Screaming [Unknown]
  - Vomiting [Recovering/Resolving]

NARRATIVE: CASE EVENT DATE: 20190129
